FAERS Safety Report 8139510-2 (Version None)
Quarter: 2012Q1

REPORT INFORMATION
  Report Type: 
  Country: None (occurrence: None)
  Receive Date: 20120215
  Receipt Date: 20120210
  Transmission Date: 20120608
  Serious: Yes (Life-Threatening, Hospitalization)
  Sender: FDA-Public Use
  Company Number: FR-EISAI INC-E2020-10330-SPO-FR

PATIENT
  Sex: Male

DRUGS (11)
  1. RISPERDAL [Suspect]
     Route: 048
     Dates: start: 20110928, end: 20111001
  2. PERINDOPRIL ARROW [Suspect]
     Route: 048
  3. XANAX [Suspect]
     Indication: ANXIETY
     Route: 048
     Dates: start: 20110928, end: 20111004
  4. RISPERDAL [Suspect]
     Indication: DEMENTIA ALZHEIMER'S TYPE
     Route: 048
     Dates: start: 20110926, end: 20110927
  5. ASPIRIN [Suspect]
     Route: 048
  6. MEMANTINE HYDROCHLORIDE [Suspect]
     Indication: DEMENTIA ALZHEIMER'S TYPE
     Route: 048
  7. RISPERDAL [Suspect]
     Route: 048
     Dates: start: 20111002, end: 20111005
  8. IKOREL [Suspect]
     Route: 048
  9. LOVENOX [Concomitant]
     Dosage: UNKNOWN
     Dates: start: 20111007
  10. ARICEPT [Suspect]
     Indication: DEMENTIA ALZHEIMER'S TYPE
     Route: 048
  11. ESCITALOPRAM OXALATE [Suspect]
     Route: 048
     Dates: end: 20111003

REACTIONS (1)
  - PULMONARY EMBOLISM [None]
